FAERS Safety Report 23693087 (Version 1)
Quarter: 2024Q2

REPORT INFORMATION
  Report Type: Spontaneous
  Country: GB (occurrence: GB)
  Receive Date: 20240401
  Receipt Date: 20240401
  Transmission Date: 20240716
  Serious: Yes (Other)
  Sender: FDA-Public Use
  Company Number: None

PATIENT
  Age: 84 Year
  Sex: Female

DRUGS (16)
  1. OMEPRAZOLE [Suspect]
     Active Substance: OMEPRAZOLE
     Indication: Product used for unknown indication
     Dosage: 2 DOSAGE FORM, QD
  2. MINERAL OIL\PETROLATUM\WAX, EMULSIFYING [Concomitant]
     Active Substance: MINERAL OIL\PETROLATUM\WAX, EMULSIFYING
     Dosage: 3 DOSAGE FORM, TID
  3. COMIRNATY ORIGINAL/OMICRON BA.4/5 [Concomitant]
     Dosage: 5 MICROGRAMS /15 MICROGRAMS / 0.3 ML DOSE DISPERSION FOR INJECTION MULTIDOSE VIALS
     Dates: start: 20230522, end: 20230522
  4. SANDO-K [Concomitant]
     Dosage: 2 DOSAGE FORM, QD
  5. RIFAXIMIN [Concomitant]
     Active Substance: RIFAXIMIN
     Dosage: 550 MILLIGRAM, BID
  6. PREGABALIN [Concomitant]
     Active Substance: PREGABALIN
     Dosage: 3 DOSAGE FORM, TID
  7. SPIRONOLACTONE [Concomitant]
     Active Substance: SPIRONOLACTONE
     Dosage: 300 MILLIGRAM, QD
  8. CARVEDILOL [Concomitant]
     Active Substance: CARVEDILOL
     Dosage: 3.125 MILLIGRAM, QD
  9. LACTULOSE [Concomitant]
     Active Substance: LACTULOSE
     Dosage: 3.1 - 3.7G / 5 ML
  10. FERROUS SULFATE [Concomitant]
     Active Substance: FERROUS SULFATE
     Dosage: 200 MILLIGRAM, QD
  11. THIAMINE [Concomitant]
     Active Substance: THIAMINE
     Dosage: 100 MILLIGRAM, TID
  12. FAMOTIDINE [Concomitant]
     Active Substance: FAMOTIDINE
     Indication: Gastrointestinal haemorrhage
     Dosage: 40 MILLIGRAM, BID
  13. FUROSEMIDE [Concomitant]
     Active Substance: FUROSEMIDE
     Dosage: ONE TO BE TAKEN ALTERNATE MORNING, CHEMIST SAY ONCE DAILY. SUSPENDED BY OGS LOW SODIUM.
  14. CALAMINE [Concomitant]
     Active Substance: CALAMINE\FERRIC OXIDE RED\ZINC OXIDE
     Dosage: 1 DOSAGE FORM, BID
     Route: 061
  15. ENSURE [Concomitant]
     Active Substance: AMINO ACIDS\DEXTROSE\ELECTROLYTES NOS\SOYBEAN OIL\VITAMINS
     Dosage: ENSURE PLUS MILKSHAKE STYLE LIQUID; ONCE DAILY
  16. 3M CAVILON ANTIFUNGAL [Concomitant]
     Active Substance: MICONAZOLE NITRATE
     Dosage: AS DIRECTED

REACTIONS (1)
  - Femoral neck fracture [Unknown]
